FAERS Safety Report 9202115 (Version 3)
Quarter: 2013Q2

REPORT INFORMATION
  Report Type: Spontaneous
  Country: US (occurrence: None)
  Receive Date: 20130327
  Receipt Date: 20130417
  Transmission Date: 20140414
  Serious: Yes (Other)
  Sender: FDA-Public Use
  Company Number: JPI-P-030641

PATIENT
  Age: 40 Year
  Sex: Female
  Weight: 61.24 kg

DRUGS (7)
  1. XYREM [Suspect]
     Indication: NARCOLEPSY
     Dosage: 9 GM (4.5 GM,2 IN 1 D)
     Route: 048
     Dates: start: 20090120
  2. XYREM [Suspect]
     Indication: HYPERSOMNIA
     Dosage: 9 GM (4.5 GM,2 IN 1 D)
     Route: 048
     Dates: start: 20090120
  3. XYREM [Suspect]
     Indication: SOMNOLENCE
     Dosage: 9 GM (4.5 GM,2 IN 1 D)
     Route: 048
     Dates: start: 20090120
  4. ATORVASTATIN CALCIUIM [Concomitant]
  5. ESTROPIPATE [Concomitant]
  6. CETIRIZINE [Concomitant]
  7. GABAPENTIN [Concomitant]

REACTIONS (4)
  - Clavicle fracture [None]
  - Foot operation [None]
  - Foot fracture [None]
  - Ligament sprain [None]
